FAERS Safety Report 20533567 (Version 1)
Quarter: 2022Q1

REPORT INFORMATION
  Report Type: Report from Study
  Country: US (occurrence: US)
  Receive Date: 20220301
  Receipt Date: 20220301
  Transmission Date: 20220423
  Serious: Yes (Hospitalization, Other)
  Sender: FDA-Public Use
  Company Number: US-GILEAD-2022-0571636

PATIENT
  Age: 77 Year
  Sex: Female

DRUGS (14)
  1. AZTREONAM LYSINE [Suspect]
     Active Substance: AZTREONAM LYSINE
     Indication: Bronchiectasis
     Dosage: 75 MG, TID, ADJUST TO 2 WEEKS ON AND 2 WEEKS OFF IF UNABLE TO DO 1 MONTH ON AND 1 MONTH OFF
     Route: 055
  2. PULMICORT TURBUHALER [Concomitant]
     Active Substance: BUDESONIDE
  3. SPIRIVA [Concomitant]
     Active Substance: TIOTROPIUM BROMIDE MONOHYDRATE
  4. VITAMINS [Concomitant]
     Active Substance: VITAMINS
  5. SINGULAIR [Concomitant]
     Active Substance: MONTELUKAST SODIUM
  6. PIOGLITAZONE HYDROCHLORIDE [Concomitant]
     Active Substance: PIOGLITAZONE HYDROCHLORIDE
  7. PULMOZYME [Concomitant]
     Active Substance: DORNASE ALFA
  8. PREDNISONE [Concomitant]
     Active Substance: PREDNISONE
  9. OXYGEN [Concomitant]
     Active Substance: OXYGEN
  10. VFEND [Concomitant]
     Active Substance: VORICONAZOLE
  11. FUROSEMIDE [Concomitant]
     Active Substance: FUROSEMIDE
  12. WARFARIN SODIUM [Concomitant]
     Active Substance: WARFARIN SODIUM
  13. XOPENEX [Concomitant]
     Active Substance: LEVALBUTEROL HYDROCHLORIDE
  14. CALCIUM [Concomitant]
     Active Substance: CALCIUM

REACTIONS (1)
  - Pneumonia viral [Unknown]

NARRATIVE: CASE EVENT DATE: 20220201
